FAERS Safety Report 10765344 (Version 2)
Quarter: 2015Q2

REPORT INFORMATION
  Report Type: Spontaneous
  Country: JP (occurrence: None)
  Receive Date: 20150203
  Receipt Date: 20150504
  Transmission Date: 20150821
  Serious: Yes (Life-Threatening)
  Sender: FDA-Public Use
  Company Number: 2015FE00163

PATIENT
  Age: 63 Year
  Sex: Male
  Weight: 68 kg

DRUGS (6)
  1. NORVASK (AMLODIPINE BESILATE) [Concomitant]
  2. MICARDIS [Concomitant]
     Active Substance: TELMISARTAN
  3. AMARYL [Concomitant]
     Active Substance: GLIMEPIRIDE
  4. CARDENALIN (DOXAZOSIN MESILATE) [Concomitant]
  5. GONAX [Suspect]
     Active Substance: DEGARELIX
     Indication: PROSTATE CANCER
     Route: 058
     Dates: start: 20140731, end: 20140731
  6. PROHEPARUM (CHOLINE BITARTRATE, CYANOCOBALAMIN, CYSTEINE, INOSITOL, LIVER HYDROLYSATE) [Concomitant]

REACTIONS (2)
  - Upper gastrointestinal haemorrhage [None]
  - Altered state of consciousness [None]

NARRATIVE: CASE EVENT DATE: 20141224
